FAERS Safety Report 9805965 (Version 2)
Quarter: 2014Q1

REPORT INFORMATION
  Report Type: Report from Study
  Country: CA (occurrence: CA)
  Receive Date: 20140109
  Receipt Date: 20140109
  Transmission Date: 20141002
  Serious: Yes (Death)
  Sender: FDA-Public Use
  Company Number: CA-INCYTE CORPORATION-2013IN000567

PATIENT
  Age: 78 Year
  Sex: Male

DRUGS (3)
  1. JAKAVI [Suspect]
     Indication: MYELOFIBROSIS
     Dosage: 20 MG, BID
     Route: 048
     Dates: start: 201208
  2. JAKAVI [Suspect]
     Dosage: UNK, UNK, UNK
     Route: 048
     Dates: start: 20130809
  3. TYLENOL [Concomitant]

REACTIONS (4)
  - Death [Fatal]
  - Splenomegaly [Not Recovered/Not Resolved]
  - Cholelithiasis [Unknown]
  - Cough [Recovering/Resolving]
